FAERS Safety Report 7676773-1 (Version None)
Quarter: 2011Q3

REPORT INFORMATION
  Report Type: 
  Country: None (occurrence: None)
  Receive Date: 20110811
  Receipt Date: 20110728
  Transmission Date: 20111222
  Serious: Yes (Hospitalization, Other)
  Sender: FDA-Public Use
  Company Number: JP-SANOFI-AVENTIS-2011SA022416

PATIENT
  Age: 56 Year
  Sex: Female
  Weight: 59 kg

DRUGS (80)
  1. MEROPENEM [Suspect]
     Route: 065
     Dates: start: 20100622, end: 20100624
  2. LEVOGLUTAMIDE [Suspect]
     Route: 065
     Dates: start: 20100830, end: 20100830
  3. GUAIAZULENE [Suspect]
     Route: 065
     Dates: start: 20100624, end: 20100624
  4. ALFAROL [Suspect]
     Route: 065
     Dates: start: 20100629, end: 20100801
  5. BISOPROLOL FUMARATE [Suspect]
     Route: 065
     Dates: end: 20100614
  6. GABAPENTIN [Suspect]
     Route: 065
     Dates: start: 20100830, end: 20100830
  7. BIO THREE [Suspect]
     Route: 065
     Dates: start: 20100823, end: 20100830
  8. CALCIUM LACTATE [Suspect]
     Route: 065
     Dates: start: 20100622, end: 20100628
  9. SERENAL [Suspect]
     Route: 065
     Dates: end: 20100621
  10. LOXONIN [Suspect]
     Route: 065
     Dates: start: 20100726, end: 20100730
  11. LEVOGLUTAMIDE [Suspect]
     Route: 065
     Dates: start: 20100705, end: 20100709
  12. LEVOGLUTAMIDE [Suspect]
     Route: 065
     Dates: start: 20100809, end: 20100827
  13. TAXOTERE [Suspect]
     Route: 065
     Dates: start: 20100802, end: 20100802
  14. TAXOTERE [Suspect]
     Route: 065
     Dates: start: 20100823, end: 20100823
  15. LEVOTHYROXINE SODIUM [Suspect]
     Route: 065
     Dates: start: 20100622, end: 20100622
  16. ALFAROL [Suspect]
     Route: 065
     Dates: end: 20100621
  17. ALFAROL [Suspect]
     Route: 065
     Dates: start: 20100803, end: 20100830
  18. BIO THREE [Suspect]
     Route: 065
     Dates: start: 20100621, end: 20100711
  19. TRASTUZUMAB [Suspect]
     Route: 065
     Dates: start: 20100621, end: 20100830
  20. SERENAL [Suspect]
     Route: 065
     Dates: start: 20100629, end: 20100716
  21. ASPARA POTASSIUM [Suspect]
     Route: 065
     Dates: start: 20100616, end: 20100621
  22. ASPARA POTASSIUM [Suspect]
     Route: 065
     Dates: start: 20100622, end: 20100622
  23. DECADRON [Suspect]
     Route: 065
     Dates: start: 20100705, end: 20100706
  24. DECADRON [Suspect]
     Route: 065
     Dates: start: 20100823, end: 20100824
  25. NATEGLINIDE [Suspect]
     Route: 065
     Dates: end: 20100715
  26. NEUTROGIN [Suspect]
     Route: 058
     Dates: start: 20100809, end: 20100810
  27. CYCLOPHOSPHAMIDE [Suspect]
     Route: 065
     Dates: start: 20100823, end: 20100823
  28. TAXOTERE [Suspect]
     Route: 065
     Dates: start: 20100705, end: 20100705
  29. LEVOTHYROXINE SODIUM [Suspect]
     Route: 065
     Dates: end: 20100621
  30. LEVOTHYROXINE SODIUM [Suspect]
     Route: 065
     Dates: start: 20100623, end: 20100628
  31. LEVOTHYROXINE SODIUM [Suspect]
     Route: 065
     Dates: start: 20100802, end: 20100802
  32. BIO THREE [Suspect]
     Route: 065
     Dates: start: 20100712, end: 20100718
  33. TRASTUZUMAB [Suspect]
     Indication: BREAST CANCER
     Route: 065
     Dates: start: 20100614, end: 20100614
  34. DECADRON [Suspect]
     Route: 065
     Dates: end: 20100615
  35. LOXONIN [Suspect]
     Route: 065
     Dates: end: 20100618
  36. LOXONIN [Suspect]
     Route: 065
     Dates: start: 20100809, end: 20100827
  37. LEVOGLUTAMIDE [Suspect]
     Route: 065
     Dates: end: 20100618
  38. LEVOGLUTAMIDE [Suspect]
     Route: 065
     Dates: start: 20100712, end: 20100716
  39. NEUTROGIN [Suspect]
     Indication: FEBRILE NEUTROPENIA
     Route: 058
     Dates: start: 20100621, end: 20100622
  40. NEUTROGIN [Suspect]
     Route: 058
     Dates: start: 20100712, end: 20100713
  41. LEVOTHYROXINE SODIUM [Suspect]
     Route: 065
     Dates: start: 20100803, end: 20100830
  42. ALFAROL [Suspect]
     Route: 065
     Dates: start: 20100802, end: 20100802
  43. BISOPROLOL FUMARATE [Suspect]
     Route: 065
     Dates: start: 20100615, end: 20100621
  44. BISOPROLOL FUMARATE [Suspect]
     Route: 065
     Dates: start: 20100629, end: 20100711
  45. LOPERAMIDE HCL [Suspect]
     Route: 065
     Dates: start: 20100624, end: 20100628
  46. ZOFRAN [Suspect]
     Route: 065
     Dates: start: 20100802, end: 20100806
  47. SERENAL [Suspect]
     Route: 065
     Dates: start: 20100802, end: 20100822
  48. ASPARA POTASSIUM [Suspect]
     Route: 065
     Dates: start: 20100629, end: 20100704
  49. LOXONIN [Suspect]
     Route: 065
     Dates: start: 20100712, end: 20100716
  50. VOLTAREN [Suspect]
     Route: 065
     Dates: end: 20100614
  51. LEVOGLUTAMIDE [Suspect]
     Route: 065
     Dates: start: 20100726, end: 20100730
  52. CYCLOPHOSPHAMIDE [Suspect]
     Indication: BREAST CANCER
     Route: 065
     Dates: start: 20100614, end: 20100614
  53. LEVOFLOXACIN [Suspect]
     Route: 065
     Dates: end: 20100615
  54. SERENAL [Suspect]
     Route: 065
     Dates: start: 20100622, end: 20100628
  55. HACHIAZULE [Suspect]
     Route: 065
     Dates: end: 20100614
  56. LOXONIN [Suspect]
     Route: 065
     Dates: start: 20100621, end: 20100625
  57. LOXONIN [Suspect]
     Route: 065
     Dates: start: 20100705, end: 20100709
  58. LOXONIN [Suspect]
     Route: 065
     Dates: start: 20100802, end: 20100806
  59. NEUTROGIN [Suspect]
     Route: 058
     Dates: start: 20100830, end: 20100831
  60. ZOFRAN [Suspect]
     Route: 065
     Dates: start: 20100705, end: 20100709
  61. CALCIUM LACTATE [Suspect]
     Route: 065
     Dates: end: 20100621
  62. ASPARA POTASSIUM [Suspect]
     Route: 065
     Dates: end: 20100615
  63. LOXONIN [Suspect]
     Route: 065
     Dates: start: 20100830, end: 20100830
  64. LEVOGLUTAMIDE [Suspect]
     Route: 065
     Dates: start: 20100621, end: 20100625
  65. CYCLOPHOSPHAMIDE [Suspect]
     Route: 065
     Dates: start: 20100705, end: 20100705
  66. CYCLOPHOSPHAMIDE [Suspect]
     Route: 065
     Dates: start: 20100802, end: 20100802
  67. LEVOFLOXACIN [Suspect]
     Route: 065
     Dates: start: 20100726, end: 20100728
  68. LEVOFLOXACIN [Suspect]
     Route: 065
     Dates: start: 20100830, end: 20100830
  69. TAXOTERE [Suspect]
     Indication: BREAST CANCER
     Route: 065
     Dates: start: 20100614, end: 20100614
  70. NEO-MERCAZOLE TAB [Suspect]
     Route: 065
     Dates: end: 20100622
  71. LEVOTHYROXINE SODIUM [Suspect]
     Route: 065
     Dates: start: 20100602, end: 20100801
  72. ALFAROL [Suspect]
     Route: 065
     Dates: start: 20100622, end: 20100628
  73. BISOPROLOL FUMARATE [Suspect]
     Route: 065
     Dates: start: 20100622, end: 20100628
  74. GABAPENTIN [Suspect]
     Route: 065
     Dates: start: 20100816, end: 20100822
  75. BIO THREE [Suspect]
     Route: 065
     Dates: start: 20100726, end: 20100801
  76. BIO THREE [Suspect]
     Route: 065
     Dates: start: 20100802, end: 20100808
  77. BIO THREE [Suspect]
     Route: 065
     Dates: start: 20100809, end: 20100815
  78. DECADRON [Suspect]
     Route: 065
     Dates: start: 20100802, end: 20100803
  79. LEVOGLUTAMIDE [Suspect]
     Route: 065
     Dates: start: 20100802, end: 20100806
  80. NICARDIPINE HCL [Suspect]
     Route: 065
     Dates: start: 20100622, end: 20100628

REACTIONS (14)
  - DYSPNOEA [None]
  - RALES [None]
  - COUGH [None]
  - BLOOD LACTATE DEHYDROGENASE INCREASED [None]
  - MUSCULOSKELETAL STIFFNESS [None]
  - BRONCHITIS [None]
  - NEUTROPHIL COUNT DECREASED [None]
  - PYREXIA [None]
  - FEBRILE NEUTROPENIA [None]
  - OROPHARYNGEAL PAIN [None]
  - MALAISE [None]
  - C-REACTIVE PROTEIN INCREASED [None]
  - WHITE BLOOD CELL COUNT DECREASED [None]
  - INTERSTITIAL LUNG DISEASE [None]
